FAERS Safety Report 6105634-4 (Version None)
Quarter: 2009Q1

REPORT INFORMATION
  Report Type: 
  Country: None (occurrence: None)
  Receive Date: 20090304
  Receipt Date: 20090304
  Transmission Date: 20090719
  Serious: No
  Sender: FDA-Public Use
  Company Number: None

PATIENT
  Age: 60 Year
  Sex: Female
  Weight: 67.1324 kg

DRUGS (1)
  1. INDOMETHACIN [Suspect]
     Indication: ARTHRALGIA
     Dosage: 1 CAPLET TWICE A DAY BUCCAL
     Route: 002
     Dates: start: 20090216, end: 20090225

REACTIONS (7)
  - AGGRESSION [None]
  - CYSTITIS [None]
  - FEELING ABNORMAL [None]
  - INAPPROPRIATE AFFECT [None]
  - NERVOUSNESS [None]
  - PERSONALITY CHANGE [None]
  - TREMOR [None]
